FAERS Safety Report 15734371 (Version 10)
Quarter: 2022Q2

REPORT INFORMATION
  Report Type: Report from Study
  Country: JP (occurrence: JP)
  Receive Date: 20181218
  Receipt Date: 20220624
  Transmission Date: 20220720
  Serious: Yes (Other)
  Sender: FDA-Public Use
  Company Number: JP-VIIV HEALTHCARE LIMITED-A200601823

PATIENT

DRUGS (14)
  1. LAMIVUDINE [Suspect]
     Active Substance: LAMIVUDINE
     Indication: Acquired immunodeficiency syndrome
     Dosage: 300 MG, 1D
     Route: 048
     Dates: start: 20000706, end: 20030331
  2. LAMIVUDINE [Suspect]
     Active Substance: LAMIVUDINE
     Dosage: 150 MG, BID
     Route: 048
     Dates: start: 20030401, end: 20061024
  3. EFAVIRENZ [Suspect]
     Active Substance: EFAVIRENZ
     Indication: Acquired immunodeficiency syndrome
     Dosage: 600 MG, 1D
     Route: 048
     Dates: start: 20000706, end: 201210
  4. VIREAD [Suspect]
     Active Substance: TENOFOVIR DISOPROXIL FUMARATE
     Indication: Acquired immunodeficiency syndrome
     Dosage: 300 MG, QD
     Route: 048
     Dates: start: 20040811, end: 20061024
  5. EDURANT [Suspect]
     Active Substance: RILPIVIRINE HYDROCHLORIDE
     Indication: HIV infection
     Dosage: 25 MG, 1D
     Route: 048
     Dates: start: 201210, end: 20150820
  6. EDURANT [Suspect]
     Active Substance: RILPIVIRINE HYDROCHLORIDE
     Dosage: 25 MG, 1D
     Route: 048
     Dates: start: 20170310, end: 20170922
  7. DESCOVY [Concomitant]
     Active Substance: EMTRICITABINE\TENOFOVIR ALAFENAMIDE FUMARATE
     Indication: HIV infection
     Dosage: 1 DF, QD
     Dates: start: 20170310, end: 20190823
  8. TIVICAY [Concomitant]
     Active Substance: DOLUTEGRAVIR SODIUM
     Indication: HIV infection
     Dosage: 50 MG, 1D
     Dates: start: 20170923, end: 20190823
  9. ASPIRIN [Concomitant]
     Active Substance: ASPIRIN
     Indication: Prophylaxis
     Dosage: UNK
  10. ALINAMIN F [Concomitant]
     Active Substance: FURSULTIAMINE HYDROCHLORIDE
     Indication: Prophylaxis
     Dosage: UNK
  11. REBAMIPIDE [Concomitant]
     Active Substance: REBAMIPIDE
     Indication: Prophylaxis
     Dosage: UNK
     Dates: start: 20170926, end: 20171012
  12. BIKTARVY [Concomitant]
     Active Substance: BICTEGRAVIR SODIUM\EMTRICITABINE\TENOFOVIR ALAFENAMIDE FUMARATE
     Indication: HIV infection
     Dosage: 1 DF, 1D
     Dates: start: 20190824
  13. LOXOPROFEN SODIUM [Concomitant]
     Active Substance: LOXOPROFEN SODIUM
     Indication: Dupuytren^s contracture
     Dosage: UNK
     Dates: start: 20170926, end: 20171012
  14. CELECOXIB [Concomitant]
     Active Substance: CELECOXIB
     Indication: Dupuytren^s contracture
     Dosage: UNK
     Dates: start: 20170906, end: 20170925

REACTIONS (3)
  - Arterial stenosis [Not Recovered/Not Resolved]
  - Hyperlipidaemia [Not Recovered/Not Resolved]
  - Hepatic steatosis [Unknown]

NARRATIVE: CASE EVENT DATE: 20011001
